FAERS Safety Report 4307635-5 (Version None)
Quarter: 2004Q1

REPORT INFORMATION
  Report Type: 
  Country: None (occurrence: None)
  Receive Date: 20040227
  Receipt Date: 20040227
  Transmission Date: 20041129
  Serious: Yes (Other)
  Sender: FDA-Public Use
  Company Number: None

PATIENT
  Age: 43 Year
  Sex: Male
  Weight: 113.3993 kg

DRUGS (1)
  1. TEQUIN [Suspect]
     Indication: SINUSITIS
     Dosage: 400 MG DAILY ORAL
     Route: 048
     Dates: start: 20040214, end: 20040224

REACTIONS (3)
  - ANXIETY [None]
  - FEELING ABNORMAL [None]
  - PSYCHOTIC DISORDER [None]
